FAERS Safety Report 7549874-6 (Version None)
Quarter: 2011Q2

REPORT INFORMATION
  Report Type: 
  Country: None (occurrence: None)
  Receive Date: 20110615
  Receipt Date: 20110610
  Transmission Date: 20111010
  Serious: Yes (Death)
  Sender: FDA-Public Use
  Company Number: GB-GILEAD-2011-0040087

PATIENT
  Age: 73 Year
  Sex: Female

DRUGS (15)
  1. FUROSEMIDE [Concomitant]
     Route: 048
  2. RANEXA [Suspect]
     Route: 048
  3. AMIODARONE HCL [Concomitant]
     Route: 048
  4. SALAMOL EASI-BREATHE [Concomitant]
  5. WARFARIN SODIUM [Concomitant]
  6. CANDESARTAN CILEXETIL [Concomitant]
     Route: 048
  7. ROSUVASTATIN [Concomitant]
     Route: 048
  8. CODEINE SULFATE [Concomitant]
  9. BISOPROLOL FUMARATE [Concomitant]
  10. LEFLUNOMIDE [Concomitant]
     Route: 048
  11. NITROGLYCERIN [Concomitant]
  12. PREDNISOLONE [Concomitant]
     Route: 048
  13. RANTIDINE [Concomitant]
  14. ISOSORBIDE DINITRATE [Concomitant]
  15. ACETAMINOPHEN [Concomitant]

REACTIONS (2)
  - MULTI-ORGAN FAILURE [None]
  - NEUTROPENIA [None]
